FAERS Safety Report 9720836 (Version 2)
Quarter: 2013Q4

REPORT INFORMATION
  Report Type: Spontaneous
  Country: US (occurrence: US)
  Receive Date: 20131129
  Receipt Date: 20131129
  Transmission Date: 20140711
  Serious: Yes (Hospitalization, Other)
  Sender: FDA-Public Use
  Company Number: US-AMGEN-USASP2013080413

PATIENT
  Age: 58 Year
  Sex: Female
  Weight: 83.6 kg

DRUGS (5)
  1. NEULASTA [Suspect]
     Indication: PROPHYLAXIS
     Dosage: 6 MG, ONCE AFTER CHEMOTHERAPY
     Route: 058
     Dates: start: 20130208
  2. TAXOTERE [Suspect]
     Indication: HER-2 POSITIVE BREAST CANCER
     Dosage: 138 UNK, ONCE
     Route: 042
     Dates: start: 20130207, end: 20130228
  3. CARBOPLATIN [Concomitant]
     Indication: HER-2 POSITIVE BREAST CANCER
     Dosage: 627 UNK, ONCE
     Route: 042
     Dates: start: 20130207, end: 20130228
  4. TAXOL [Concomitant]
     Indication: HER-2 POSITIVE BREAST CANCER
     Dosage: 147 UNK, WEEKLY X 6
     Route: 042
     Dates: start: 20130404, end: 20130516
  5. HERCEPTIN [Concomitant]
     Indication: HER-2 POSITIVE BREAST CANCER
     Dosage: 161 UNK, Q3WK X 2 THEN WEEKLY X6 AND THEN Q3WK
     Route: 042
     Dates: start: 20130207

REACTIONS (5)
  - Pharyngeal oedema [Recovered/Resolved]
  - Pneumonia [Unknown]
  - Drug hypersensitivity [Recovered/Resolved]
  - Chest pain [Recovered/Resolved]
  - Throat tightness [Recovered/Resolved]
